FAERS Safety Report 9714171 (Version 1)
Quarter: 2013Q4

REPORT INFORMATION
  Report Type: Spontaneous
  Country: US (occurrence: US)
  Receive Date: 20131126
  Receipt Date: 20131126
  Transmission Date: 20140711
  Serious: No
  Sender: FDA-Public Use
  Company Number: US-GILEAD-2008-0019131

PATIENT
  Sex: Female
  Weight: 55.34 kg

DRUGS (9)
  1. LETAIRIS [Suspect]
     Indication: PULMONARY ARTERIAL HYPERTENSION
     Route: 048
     Dates: start: 20080815
  2. REVATIO [Concomitant]
  3. ADVAIR [Concomitant]
  4. SPIRIVA [Concomitant]
  5. PLAVIX [Concomitant]
  6. ZEGERID [Concomitant]
  7. MULTIVITAMIN [Concomitant]
  8. RECLAST [Concomitant]
  9. CALCIUM [Concomitant]

REACTIONS (1)
  - Anaemia [None]
